FAERS Safety Report 22925423 (Version 4)
Quarter: 2024Q2

REPORT INFORMATION
  Report Type: Spontaneous
  Country: AR (occurrence: AR)
  Receive Date: 20230908
  Receipt Date: 20240506
  Transmission Date: 20240716
  Serious: Yes (Other)
  Sender: FDA-Public Use
  Company Number: AR-BIOMARINAP-AR-2023-152561

PATIENT

DRUGS (2)
  1. NAGLAZYME [Suspect]
     Active Substance: GALSULFASE
     Indication: Mucopolysaccharidosis VI
     Dosage: 1 MILLIGRAM/KILOGRAM, QW
     Route: 042
  2. BENADRYL [Concomitant]
     Active Substance: DIPHENHYDRAMINE HYDROCHLORIDE
     Indication: Premedication
     Dosage: 10 MILLILITER
     Route: 048

REACTIONS (4)
  - Spinal cord compression [Not Recovered/Not Resolved]
  - Syncope [Unknown]
  - Dizziness [Unknown]
  - Incontinence [Not Recovered/Not Resolved]

NARRATIVE: CASE EVENT DATE: 20230801
